FAERS Safety Report 13186364 (Version 1)
Quarter: 2017Q1

REPORT INFORMATION
  Report Type: Spontaneous
  Country: BR (occurrence: BR)
  Receive Date: 20170204
  Receipt Date: 20170204
  Transmission Date: 20170428
  Serious: Yes (Hospitalization)
  Sender: FDA-Public Use
  Company Number: BR-009507513-1701BRA013171

PATIENT
  Age: 30 Year
  Sex: Female
  Weight: 65 kg

DRUGS (3)
  1. NUVARING [Suspect]
     Active Substance: ETHINYL ESTRADIOL\ETONOGESTREL
     Indication: CONTRACEPTION
     Dosage: 1 VAGINAL RING, QM (3 WEEKS OF USE AND 1 WEEK OF PAUSE)
     Route: 067
     Dates: start: 20100304, end: 201701
  2. NUVARING [Suspect]
     Active Substance: ETHINYL ESTRADIOL\ETONOGESTREL
     Indication: MENSTRUAL CYCLE MANAGEMENT
     Dosage: 1 VAGINAL RING,  QM (3 WEEKS OF USE AND 1 WEEK OF PAUSE)
     Route: 067
     Dates: start: 20170122
  3. AVAMYS [Concomitant]
     Active Substance: FLUTICASONE FUROATE
     Indication: RHINITIS
     Dosage: SPRAY-ONE PUFF IN EACH NOSTRIL 3 TIMES A DAY WHEN NECESSARY
     Route: 045
     Dates: start: 1999

REACTIONS (9)
  - Product use issue [Unknown]
  - Dysmenorrhoea [Not Recovered/Not Resolved]
  - Device breakage [Not Recovered/Not Resolved]
  - Vulvovaginal pain [Recovered/Resolved]
  - Vulvovaginal pain [Not Recovered/Not Resolved]
  - Nasal septal operation [Recovered/Resolved]
  - Hypomenorrhoea [Not Recovered/Not Resolved]
  - Vulvovaginal discomfort [Recovered/Resolved]
  - Vulvovaginal discomfort [Not Recovered/Not Resolved]

NARRATIVE: CASE EVENT DATE: 20100304
